FAERS Safety Report 8238849-X (Version None)
Quarter: 2012Q1

REPORT INFORMATION
  Report Type: 
  Country: None (occurrence: None)
  Receive Date: 20120327
  Receipt Date: 20120320
  Transmission Date: 20120608
  Serious: Yes (Other)
  Sender: FDA-Public Use
  Company Number: US-TEVA-329041USA

PATIENT
  Sex: Female
  Weight: 61.29 kg

DRUGS (2)
  1. PLAN B ONE-STEP [Suspect]
     Indication: POST COITAL CONTRACEPTION
     Dosage: 1.5 MILLIGRAM;
     Route: 048
  2. PLAN B ONE-STEP [Suspect]
     Dosage: 1.5 MILLIGRAM;
     Route: 048
     Dates: start: 20120303, end: 20120303

REACTIONS (8)
  - ABORTION SPONTANEOUS [None]
  - DRUG INEFFECTIVE [None]
  - BREAST ENLARGEMENT [None]
  - PREGNANCY AFTER POST COITAL CONTRACEPTION [None]
  - MENSTRUATION IRREGULAR [None]
  - DIZZINESS [None]
  - NAUSEA [None]
  - FATIGUE [None]
